FAERS Safety Report 10535831 (Version 1)
Quarter: 2014Q4

REPORT INFORMATION
  Report Type: Spontaneous
  Country: US (occurrence: US)
  Receive Date: 20141022
  Receipt Date: 20141022
  Transmission Date: 20150529
  Serious: No
  Sender: FDA-Public Use
  Company Number: US-RECKITT BENCKISER PHARMACEUTICAL, INC-RB-60144-2013

PATIENT

DRUGS (5)
  1. XANAX [Concomitant]
     Active Substance: ALPRAZOLAM
     Indication: ANXIETY
     Dosage: DOSING DETAILS UNKNOWN
     Route: 065
  2. KLONOPIN [Concomitant]
     Active Substance: CLONAZEPAM
     Indication: ANXIETY
     Dosage: DOISNG DETAILS UNKNOWN
     Route: 048
  3. VALIUM [Concomitant]
     Active Substance: DIAZEPAM
     Indication: ANXIETY
     Dosage: DOSING DETAILS UNKNOWN
     Route: 048
  4. SUBOXONE [Suspect]
     Active Substance: BUPRENORPHINE HYDROCHLORIDE\NALOXONE HYDROCHLORIDE
     Indication: PAIN
     Dosage: SUBOXONE FILM; 2-3 TIMES DAILY
     Route: 060
     Dates: start: 2013
  5. SUBOXONE [Suspect]
     Active Substance: BUPRENORPHINE HYDROCHLORIDE\NALOXONE HYDROCHLORIDE
     Indication: PAIN
     Dosage: 2-3 DAILY
     Route: 060
     Dates: start: 2013

REACTIONS (2)
  - Off label use [Not Recovered/Not Resolved]
  - Substance abuse [Not Recovered/Not Resolved]

NARRATIVE: CASE EVENT DATE: 2013
